FAERS Safety Report 7765398-5 (Version None)
Quarter: 2011Q3

REPORT INFORMATION
  Report Type: 
  Country: None (occurrence: None)
  Receive Date: 20110921
  Receipt Date: 20110914
  Transmission Date: 20111222
  Serious: Yes (Hospitalization, Other)
  Sender: FDA-Public Use
  Company Number: US-MERCK-1106USA01626

PATIENT
  Age: 56 Year
  Sex: Female

DRUGS (6)
  1. FOSAMAX [Suspect]
     Indication: OSTEOPENIA
     Route: 048
     Dates: start: 19980101, end: 20080101
  2. VITAMINS (UNSPECIFIED) [Concomitant]
     Route: 065
     Dates: start: 19610101
  3. TRICOR [Concomitant]
     Indication: BLOOD CHOLESTEROL INCREASED
     Route: 065
     Dates: start: 19950101
  4. CIPROFLOXACIN [Concomitant]
     Route: 065
     Dates: start: 19950101
  5. KLOR-CON [Concomitant]
     Indication: MINERAL SUPPLEMENTATION
     Route: 065
     Dates: start: 19800101
  6. FOSAMAX [Suspect]
     Indication: OSTEOPOROSIS
     Route: 048
     Dates: start: 19980101, end: 20080101

REACTIONS (6)
  - FRACTURE NONUNION [None]
  - LOW TURNOVER OSTEOPATHY [None]
  - OSTEOARTHRITIS [None]
  - FEMUR FRACTURE [None]
  - ABASIA [None]
  - BREAST CANCER [None]
